FAERS Safety Report 7213535-3 (Version None)
Quarter: 2011Q1

REPORT INFORMATION
  Report Type: 
  Country: None (occurrence: None)
  Receive Date: 20110106
  Receipt Date: 20110103
  Transmission Date: 20110831
  Serious: Yes (Other)
  Sender: FDA-Public Use
  Company Number: US-PFIZER INC-2011000790

PATIENT
  Sex: Female
  Weight: 64 kg

DRUGS (13)
  1. PROPRANOLOL [Concomitant]
     Indication: HEART RATE ABNORMAL
  2. TRIAMCINOLONE [Concomitant]
     Indication: TINEA INFECTION
     Dosage: UNK
     Dates: start: 20100101
  3. AMBIEN [Concomitant]
     Dosage: UNK
     Dates: start: 20100101
  4. CHANTIX [Suspect]
     Dosage: UNK
     Dates: start: 20101101, end: 20101201
  5. CYMBALTA [Concomitant]
     Indication: DEPRESSION
  6. CHANTIX [Suspect]
     Indication: SMOKING CESSATION THERAPY
     Dosage: 0.5 MG, UNK
     Route: 048
     Dates: start: 20100201, end: 20100101
  7. DIAZEPAM [Concomitant]
     Indication: ANXIETY
     Dosage: 10 MG, 3X/DAY
     Dates: start: 20100101
  8. LISINOPRIL [Concomitant]
     Indication: HYPERTENSION
     Dosage: 20 MG, 2X/DAY
  9. CONCERTA [Concomitant]
     Indication: ATTENTION DEFICIT/HYPERACTIVITY DISORDER
     Dosage: UNK
     Route: 048
  10. CLONIDINE [Concomitant]
     Indication: HYPERTENSION
     Dosage: 0.1 MG, 2X/DAY
  11. LISINOPRIL [Concomitant]
     Indication: HEART RATE ABNORMAL
  12. CYMBALTA [Concomitant]
     Indication: ANXIETY
     Dosage: UNK
     Route: 048
  13. PROPRANOLOL [Concomitant]
     Indication: HYPERTENSION
     Dosage: UNK

REACTIONS (3)
  - RASH [None]
  - SKIN DISCOLOURATION [None]
  - FURUNCLE [None]
